FAERS Safety Report 15288112 (Version 2)
Quarter: 2018Q3

REPORT INFORMATION
  Report Type: Spontaneous
  Country: IT (occurrence: IT)
  Receive Date: 20180817
  Receipt Date: 20180825
  Transmission Date: 20181010
  Serious: Yes (Life-Threatening, Hospitalization, Other)
  Sender: FDA-Public Use
  Company Number: IT-B.I. PHARMACEUTICALS,INC./RIDGEFIELD-2018-12-002816

PATIENT
  Age: 78 Year
  Sex: Female

DRUGS (1)
  1. MICARDIS PLUS [Suspect]
     Active Substance: HYDROCHLOROTHIAZIDE\TELMISARTAN
     Indication: HYPERTENSION
     Dosage: ; IN TOTAL?HYDROCHLOROTHIAZIDE: 12.50 MG;TELMISARTAN: 40 MG
     Route: 048

REACTIONS (9)
  - Alveolitis allergic [Recovered/Resolved]
  - Procalcitonin increased [Recovering/Resolving]
  - Accidental exposure to product [Unknown]
  - Acute interstitial pneumonitis [Recovered/Resolved]
  - Leukocytosis [Recovering/Resolving]
  - Disseminated intravascular coagulation [Unknown]
  - Pulmonary oedema [Recovered/Resolved]
  - Condition aggravated [Unknown]
  - Respiratory acidosis [Unknown]
